FAERS Safety Report 16366347 (Version 2)
Quarter: 2019Q2

REPORT INFORMATION
  Report Type: Spontaneous
  Country: US (occurrence: US)
  Receive Date: 20190529
  Receipt Date: 20190616
  Transmission Date: 20190711
  Serious: Yes (Death, Other)
  Sender: FDA-Public Use
  Company Number: PHEH2019US022779

PATIENT
  Sex: Female

DRUGS (1)
  1. MEKINIST [Suspect]
     Active Substance: TRAMETINIB DIMETHYL SULFOXIDE
     Indication: MALIGNANT CONNECTIVE TISSUE NEOPLASM
     Dosage: 1 MG, QD
     Route: 048
     Dates: start: 20180627

REACTIONS (4)
  - Seizure [Unknown]
  - Intracranial pressure increased [Unknown]
  - Metastases to spinal cord [Fatal]
  - Metastases to central nervous system [Fatal]
